FAERS Safety Report 8910435 (Version 1)
Quarter: 2012Q4

REPORT INFORMATION
  Report Type: Report from Study
  Country: US (occurrence: US)
  Receive Date: 20121114
  Receipt Date: 20121114
  Transmission Date: 20130627
  Serious: Yes (Disabling, Other)
  Sender: FDA-Public Use
  Company Number: US-PFIZER INC-2011297078

PATIENT
  Age: 43 Year
  Sex: Female
  Weight: 65.76 kg

DRUGS (9)
  1. LYRICA [Suspect]
     Indication: FIBROMYALGIA
     Dosage: 75 mg, 3x/day
     Route: 048
     Dates: start: 201107
  2. LYRICA [Suspect]
     Dosage: 200 mg, 3x/day
     Route: 048
     Dates: end: 20121023
  3. LYRICA [Suspect]
     Dosage: 200 mg, UNK
     Route: 048
  4. LYRICA [Suspect]
     Dosage: 300 mg, 2x/day
     Route: 048
  5. SOMA [Concomitant]
     Indication: PAIN
     Dosage: UNK
     Route: 048
  6. SOMA [Concomitant]
     Indication: MUSCLE SPASMS
  7. XANAX [Concomitant]
     Indication: NERVOUS SYSTEM DISORDER
     Dosage: UNK
     Route: 048
  8. LORCET [Concomitant]
     Indication: PAIN
     Dosage: UNK
  9. AMBIEN [Concomitant]
     Indication: SLEEP PROBLEM
     Dosage: UNK

REACTIONS (10)
  - Depression [Unknown]
  - Hypertension [Unknown]
  - Blood cholesterol increased [Unknown]
  - Bedridden [Unknown]
  - Gait disturbance [Unknown]
  - Pain [Unknown]
  - Chest pain [Unknown]
  - Drug ineffective [Unknown]
  - Contusion [Recovered/Resolved]
  - Back pain [Unknown]
